FAERS Safety Report 6660538-3 (Version None)
Quarter: 2010Q1

REPORT INFORMATION
  Report Type: 
  Country: None (occurrence: None)
  Receive Date: 20100331
  Receipt Date: 20100325
  Transmission Date: 20100710
  Serious: Yes (Life-Threatening, Hospitalization)
  Sender: FDA-Public Use
  Company Number: PHHY2010FR18879

PATIENT
  Sex: Female

DRUGS (11)
  1. CLOZAPINE [Suspect]
     Indication: HALLUCINATION
     Dosage: 50 MG, QD
     Dates: start: 20081101, end: 20090920
  2. CLOZAPINE [Suspect]
     Dosage: 75 MG, QD
     Dates: start: 20090921, end: 20090921
  3. ARICEPT [Suspect]
     Indication: DEMENTIA WITH LEWY BODIES
     Dosage: 5 MG, QD
     Dates: start: 20080801
  4. ARICEPT [Suspect]
     Dosage: 10 MG, QD
     Dates: start: 20090916, end: 20090921
  5. SEROPRAM [Suspect]
     Dosage: 20 MG, QD
     Dates: start: 20090919, end: 20090921
  6. MODOPAR [Suspect]
     Dosage: 125 MG, TID
  7. LYSANXIA [Suspect]
     Indication: ANXIETY
  8. ZESTRIL [Suspect]
     Indication: HYPERTENSION
     Dosage: 5 MG, QD
     Dates: end: 20090921
  9. NOCTAMIDE [Suspect]
     Indication: SOMNOLENCE
     Dosage: UNK
     Dates: end: 20090918
  10. PARACETAMOL [Suspect]
     Indication: PAIN
     Dosage: 4 MG, QD
  11. EQUANIL [Suspect]
     Indication: ANXIETY

REACTIONS (3)
  - ABNORMAL BEHAVIOUR [None]
  - CARDIO-RESPIRATORY ARREST [None]
  - LOSS OF CONSCIOUSNESS [None]
